FAERS Safety Report 10707443 (Version 1)
Quarter: 2015Q1

REPORT INFORMATION
  Report Type: Spontaneous
  Country: US (occurrence: None)
  Receive Date: 20150112
  Receipt Date: 20150112
  Transmission Date: 20150721
  Serious: Yes (Hospitalization)
  Sender: FDA-Public Use
  Company Number: None

PATIENT
  Age: 11 Year
  Sex: Female
  Weight: 34.7 kg

DRUGS (7)
  1. THIOGUANINE [Suspect]
     Active Substance: THIOGUANINE
     Dates: end: 20141216
  2. CYTARABINE. [Suspect]
     Active Substance: CYTARABINE
     Dates: end: 20141215
  3. DOXORUBICIN HYDROCHLORIDE. [Suspect]
     Active Substance: DOXORUBICIN HYDROCHLORIDE
     Dates: end: 20141030
  4. VINCRISTINE SULFATE. [Suspect]
     Active Substance: VINCRISTINE SULFATE
     Dates: end: 20141224
  5. PEG-L-ASPARAGINASE [Suspect]
     Active Substance: PEGASPARGASE
     Dosage: 5625 IU
     Dates: end: 20141217
  6. DEXAMETHASONE. [Suspect]
     Active Substance: DEXAMETHASONE
     Dates: end: 20141105
  7. CYCLOPHOSPHAMIDE. [Suspect]
     Active Substance: CYCLOPHOSPHAMIDE
     Dates: end: 20141203

REACTIONS (9)
  - Klebsiella test positive [None]
  - Pulmonary haemorrhage [None]
  - Central nervous system lesion [None]
  - Skin lesion [None]
  - Pneumonia [None]
  - Blood culture positive [None]
  - Muscular weakness [None]
  - Zygomycosis [None]
  - Bradycardia [None]

NARRATIVE: CASE EVENT DATE: 20150108
